FAERS Safety Report 5360059-4 (Version None)
Quarter: 2007Q2

REPORT INFORMATION
  Report Type: 
  Country: None (occurrence: None)
  Receive Date: 20070618
  Receipt Date: 20070427
  Transmission Date: 20071010
  Serious: No
  Sender: FDA-Public Use
  Company Number: US-ASTRAZENECA-2007UW06389

PATIENT
  Age: 55 Year
  Sex: Female
  Weight: 92.1 kg

DRUGS (3)
  1. FASLODEX [Suspect]
     Indication: BREAST CANCER STAGE IV
     Route: 048
  2. ARIMIDEX [Concomitant]
     Indication: BREAST CANCER STAGE IV
  3. ZOMETA [Concomitant]

REACTIONS (3)
  - BREAST TENDERNESS [None]
  - DISEASE PROGRESSION [None]
  - HOT FLUSH [None]
